FAERS Safety Report 5340466-6 (Version None)
Quarter: 2007Q2

REPORT INFORMATION
  Report Type: 
  Country: None (occurrence: None)
  Receive Date: 20070531
  Receipt Date: 20070521
  Transmission Date: 20071010
  Serious: Yes (Other)
  Sender: FDA-Public Use
  Company Number: FR-PFIZER INC-2007028920

PATIENT
  Sex: Male
  Weight: 70 kg

DRUGS (2)
  1. CHAMPIX [Suspect]
     Indication: SMOKING CESSATION THERAPY
  2. ELISOR [Interacting]
     Indication: HYPERCHOLESTEROLAEMIA
     Dates: start: 20070122, end: 20070401

REACTIONS (4)
  - BLOOD CREATINE PHOSPHOKINASE INCREASED [None]
  - DRUG INTERACTION [None]
  - MYALGIA [None]
  - PAIN IN EXTREMITY [None]
